FAERS Safety Report 12139465 (Version 3)
Quarter: 2016Q1

REPORT INFORMATION
  Report Type: Spontaneous
  Country: JP (occurrence: JP)
  Receive Date: 20160303
  Receipt Date: 20160323
  Transmission Date: 20160526
  Serious: Yes (Hospitalization)
  Sender: FDA-Public Use
  Company Number: JP-009507513-1602JPN011752

PATIENT
  Age: 84 Year
  Sex: Male
  Weight: 62 kg

DRUGS (11)
  1. HYDROCORTONE [Suspect]
     Active Substance: HYDROCORTISONE
     Indication: SHOCK
  2. NICORANDIL [Concomitant]
     Active Substance: NICORANDIL
     Indication: MYOCARDIAL ISCHAEMIA
     Dosage: 48 MG, QD
     Route: 051
     Dates: start: 20151123
  3. CANCIDAS [Suspect]
     Active Substance: CASPOFUNGIN ACETATE
     Indication: SEPSIS
     Dosage: 50 MG, QD
     Route: 041
     Dates: start: 20151124, end: 20151124
  4. PITRESSIN [Concomitant]
     Active Substance: VASOPRESSIN
     Indication: SEPTIC SHOCK
     Dosage: 60 (UNDER 1000 UNIT), QD
     Route: 051
     Dates: start: 20151122, end: 20151124
  5. OMEPRAZOLE. [Concomitant]
     Active Substance: OMEPRAZOLE
     Indication: PROPHYLAXIS AGAINST GASTROINTESTINAL ULCER
     Dosage: 20 MG, QD
     Route: 051
     Dates: start: 20151122
  6. GLOVENIN [Concomitant]
     Indication: SEPTIC SHOCK
     Dosage: 5 G, QD
     Route: 051
     Dates: start: 20151123, end: 20151124
  7. CANCIDAS [Suspect]
     Active Substance: CASPOFUNGIN ACETATE
     Indication: SEPSIS
     Dosage: 35 MG, QD
     Route: 041
     Dates: start: 20151125, end: 20151201
  8. HYDROCORTONE [Suspect]
     Active Substance: HYDROCORTISONE
     Indication: ADRENOCORTICOTROPIC HORMONE DEFICIENCY
     Dosage: 200 MG, QD
     Route: 051
     Dates: start: 20151122
  9. VASOLAN [Concomitant]
     Active Substance: VERAPAMIL HYDROCHLORIDE
     Indication: ATRIAL FIBRILLATION
     Dosage: 5 MG, TID
     Route: 051
     Dates: start: 20151124
  10. MEROPENEM. [Concomitant]
     Active Substance: MEROPENEM
     Indication: SEPSIS
     Dosage: 0.5 G, BID
     Route: 051
     Dates: start: 20151122
  11. RECOMODULIN [Concomitant]
     Active Substance: THROMBOMODULIN ALFA
     Indication: DISSEMINATED INTRAVASCULAR COAGULATION
     Dosage: 0.7 DOSAGE FORM, QD
     Route: 051
     Dates: start: 20151123, end: 20151126

REACTIONS (2)
  - Neutrophil count increased [Recovered/Resolved]
  - White blood cell count increased [Recovered/Resolved]

NARRATIVE: CASE EVENT DATE: 20151125
